FAERS Safety Report 6295939-9 (Version None)
Quarter: 2009Q3

REPORT INFORMATION
  Report Type: 
  Country: None (occurrence: None)
  Receive Date: 20090804
  Receipt Date: 20090724
  Transmission Date: 20100115
  Serious: Yes (Other)
  Sender: FDA-Public Use
  Company Number: JP-ELI_LILLY_AND_COMPANY-JP200907005980

PATIENT
  Age: 59 Year
  Sex: Female

DRUGS (2)
  1. GEMZAR [Suspect]
     Indication: OVARIAN CANCER RECURRENT
     Dosage: UNK, UNK
     Route: 042
     Dates: start: 20080401, end: 20080401
  2. TOPOTECIN [Concomitant]
     Indication: OVARIAN CANCER RECURRENT
     Dosage: UNK, UNK
     Route: 042
     Dates: start: 20080401, end: 20080401

REACTIONS (4)
  - MALAISE [None]
  - MYELODYSPLASTIC SYNDROME [None]
  - NAUSEA [None]
  - OFF LABEL USE [None]
